FAERS Safety Report 4287983-8 (Version None)
Quarter: 2004Q1

REPORT INFORMATION
  Report Type: 
  Country: None (occurrence: None)
  Receive Date: 20040205
  Receipt Date: 20031209
  Transmission Date: 20041129
  Serious: No
  Sender: FDA-Public Use
  Company Number: F01200301478

PATIENT
  Age: 54 Year
  Sex: Male

DRUGS (5)
  1. ELOXATIN [Suspect]
     Indication: COLORECTAL CANCER
     Dosage: 150 MG OTHER; INTRAVENOUS NOS
     Route: 042
     Dates: start: 20031203, end: 20031203
  2. ELOXATIN [Suspect]
     Indication: METASTASES TO LIVER
     Dosage: 150 MG OTHER; INTRAVENOUS NOS
     Route: 042
     Dates: start: 20031203, end: 20031203
  3. 5-FU (FLUORORURACIL) [Concomitant]
  4. FOLINIC ACID [Concomitant]
  5. IRINOTECAN [Concomitant]

REACTIONS (5)
  - ANAPHYLACTIC SHOCK [None]
  - ERYTHEMA [None]
  - FLUSHING [None]
  - HYPOTENSION [None]
  - OXYGEN SATURATION DECREASED [None]
